FAERS Safety Report 23437865 (Version 1)
Quarter: 2024Q1

REPORT INFORMATION
  Report Type: Spontaneous
  Country: RU (occurrence: RU)
  Receive Date: 20240124
  Receipt Date: 20240124
  Transmission Date: 20240410
  Serious: Yes (Other)
  Sender: FDA-Public Use
  Company Number: RU-SANDOZ-SDZ2024RU007180

PATIENT
  Sex: Female
  Weight: 53 kg

DRUGS (1)
  1. METHOTREXATE [Suspect]
     Active Substance: METHOTREXATE
     Indication: Chemotherapy
     Dosage: 19440 MG, QD
     Route: 041
     Dates: start: 20240117, end: 20240117

REACTIONS (2)
  - Urticaria [Not Recovered/Not Resolved]
  - Hyperaemia [Not Recovered/Not Resolved]

NARRATIVE: CASE EVENT DATE: 20240120
